FAERS Safety Report 9831612 (Version 2)
Quarter: 2014Q1

REPORT INFORMATION
  Report Type: Spontaneous
  Country: US (occurrence: US)
  Receive Date: 20140121
  Receipt Date: 20140213
  Transmission Date: 20141002
  Serious: Yes (Other)
  Sender: FDA-Public Use
  Company Number: US-PFIZER INC-2014017151

PATIENT
  Age: 34 Year
  Sex: Female
  Weight: 83.9 kg

DRUGS (5)
  1. EFFEXOR XR [Suspect]
     Indication: DEPRESSION
     Dosage: 150 MG, 1X/DAY
  2. EFFEXOR XR [Suspect]
     Dosage: 375 MG, 1X/DAY
  3. EFFEXOR XR [Suspect]
     Dosage: 150 MG, DAILY
  4. CLONAZEPAM [Concomitant]
     Indication: PANIC DISORDER
     Dosage: 2 MG, 3X/DAY
  5. CLONAZEPAM [Concomitant]
     Indication: AGORAPHOBIA

REACTIONS (2)
  - Cerebrovascular accident [Unknown]
  - Back pain [Unknown]
